FAERS Safety Report 4621383-3 (Version None)
Quarter: 2005Q1

REPORT INFORMATION
  Report Type: 
  Country: None (occurrence: None)
  Receive Date: 20050325
  Receipt Date: 20050311
  Transmission Date: 20050727
  Serious: Yes (Hospitalization)
  Sender: FDA-Public Use
  Company Number: S05-FRA-01077-01

PATIENT
  Age: 31 Year
  Sex: Male

DRUGS (6)
  1. AOTAL (ACAMPROSATE) [Suspect]
     Dosage: 333 MG TID PO
     Route: 048
     Dates: start: 20030127, end: 20030202
  2. TEGRETOL [Suspect]
     Dosage: 400 MG QD PO
     Route: 048
     Dates: start: 20030116, end: 20030202
  3. TEGRETOL [Suspect]
     Dosage: 200 MG QD PO
     Route: 048
     Dates: start: 20030115, end: 20030115
  4. SURGAM (TIAPROFENIC ACID) [Suspect]
     Dosage: 100 MG BID PO
     Route: 048
     Dates: end: 20030202
  5. RISPERDAL [Suspect]
     Dosage: 1 MG QD PO
     Route: 048
     Dates: start: 19980101, end: 20030202
  6. CIBLOR [Suspect]
     Dosage: 2000 MG QD PO
     Route: 048
     Dates: start: 20030201, end: 20030202

REACTIONS (1)
  - STEVENS-JOHNSON SYNDROME [None]
